FAERS Safety Report 12984554 (Version 2)
Quarter: 2016Q4

REPORT INFORMATION
  Report Type: Report from Study
  Country: CA (occurrence: CA)
  Receive Date: 20161129
  Receipt Date: 20161212
  Transmission Date: 20170207
  Serious: Yes (Other)
  Sender: FDA-Public Use
  Company Number: CA-BEH-2016075583

PATIENT
  Sex: Female

DRUGS (5)
  1. BERINERT [Suspect]
     Active Substance: HUMAN C1-ESTERASE INHIBITOR
     Dosage: 1500 IU, QOD AS NEEDED
     Route: 042
  2. FIRAZYR [Concomitant]
     Active Substance: ICATIBANT ACETATE
  3. BERINERT [Suspect]
     Active Substance: HUMAN C1-ESTERASE INHIBITOR
     Indication: HEREDITARY ANGIOEDEMA
     Dosage: 1500 IU, QOD AS NEEDED
     Route: 058
  4. XARELTO [Concomitant]
     Active Substance: RIVAROXABAN
  5. ACETAZOLAMIDE. [Concomitant]
     Active Substance: ACETAZOLAMIDE

REACTIONS (2)
  - Vena cava thrombosis [Unknown]
  - Infusion site thrombosis [Unknown]
